FAERS Safety Report 6509168-4 (Version None)
Quarter: 2009Q4

REPORT INFORMATION
  Report Type: 
  Country: None (occurrence: None)
  Receive Date: 20091221
  Receipt Date: 20091217
  Transmission Date: 20100525
  Serious: Yes (Death)
  Sender: FDA-Public Use
  Company Number: US-GILEAD-2009-0025986

PATIENT
  Sex: Male

DRUGS (13)
  1. LETAIRIS [Suspect]
     Indication: PULMONARY ARTERIAL HYPERTENSION
     Route: 048
  2. SIMVASTATIN [Concomitant]
  3. METOPROLOL TARTRATE [Concomitant]
  4. BISOPROLOL [Concomitant]
  5. WARFARIN SODIUM [Concomitant]
  6. SPIRONOLACTONE [Concomitant]
  7. FUROSEMIDE [Concomitant]
  8. GLIPIZIDE [Concomitant]
  9. HUMALOG [Concomitant]
  10. GABAPENTIN [Concomitant]
  11. PROPOXYPHENE HCL CAP [Concomitant]
  12. APAP W/ CODEINE [Concomitant]
  13. POTASSIUM [Concomitant]

REACTIONS (1)
  - RESPIRATORY FAILURE [None]
